FAERS Safety Report 6735855-9 (Version None)
Quarter: 2010Q2

REPORT INFORMATION
  Report Type: 
  Country: None (occurrence: None)
  Receive Date: 20100520
  Receipt Date: 20100520
  Transmission Date: 20101027
  Serious: No
  Sender: FDA-Public Use
  Company Number: None

PATIENT
  Age: 38 Year
  Sex: Female
  Weight: 81.6475 kg

DRUGS (1)
  1. ZOLPIDEM TARTRATE [Suspect]
     Indication: SLEEP DISORDER
     Dosage: 1 TABLET AT BEDTIME 1/DAY PO
     Route: 048
     Dates: start: 20100315, end: 20100518

REACTIONS (4)
  - FEELING ABNORMAL [None]
  - LETHARGY [None]
  - PRODUCT QUALITY ISSUE [None]
  - PRODUCT SUBSTITUTION ISSUE [None]
